FAERS Safety Report 4680928-8 (Version None)
Quarter: 2005Q2

REPORT INFORMATION
  Report Type: 
  Country: None (occurrence: None)
  Receive Date: 20050603
  Receipt Date: 20050328
  Transmission Date: 20051028
  Serious: Yes (Death)
  Sender: FDA-Public Use
  Company Number: US-NOVOPROD-243157

PATIENT
  Age: 67 Year
  Sex: Male

DRUGS (10)
  1. NOVOSEVEN [Suspect]
     Indication: INCISION SITE HAEMORRHAGE
     Dosage: 1.2 MG, SINGLE
  2. NOVOSEVEN [Suspect]
     Dosage: 1.2 MG, SINGLE
  3. RED BLOOD CELLS [Concomitant]
     Indication: INCISION SITE HAEMORRHAGE
     Dosage: 5 UNITS, SINGLE
  4. RED BLOOD CELLS [Concomitant]
     Dosage: 4 UNITS, SINGLE
  5. RED BLOOD CELLS [Concomitant]
     Dosage: 1 UNIT, SINGLE
  6. PLATELETS [Concomitant]
     Indication: INCISION SITE HAEMORRHAGE
     Dosage: 1 DOSE, SINGLE
  7. PLATELETS [Concomitant]
     Dosage: 1 DOSE, SINGLE
  8. FRESH FROZEN PLASMA [Concomitant]
     Indication: INCISION SITE HAEMORRHAGE
     Dosage: 5 UNITS, SINGLE
  9. FRESH FROZEN PLASMA [Concomitant]
     Dosage: 2 UNITS, SINGLE
  10. FRESH FROZEN PLASMA [Concomitant]
     Dosage: 4 UNITS, SINGLE

REACTIONS (2)
  - HAEMODYNAMIC INSTABILITY [None]
  - MULTI-ORGAN FAILURE [None]
